FAERS Safety Report 22379939 (Version 2)
Quarter: 2023Q2

REPORT INFORMATION
  Report Type: Spontaneous
  Country: US (occurrence: US)
  Receive Date: 20230529
  Receipt Date: 20230609
  Transmission Date: 20230721
  Serious: Yes (Death)
  Sender: FDA-Public Use
  Company Number: US-PFIZER INC-PV202300089547

PATIENT
  Age: 1 Month
  Sex: Male
  Weight: 4.026 kg

DRUGS (4)
  1. SOMATROPIN [Suspect]
     Active Substance: SOMATROPIN
     Indication: Gene mutation
     Dosage: 0.2 MG, DAILY
     Route: 058
     Dates: start: 20230427, end: 20230515
  2. SOMATROPIN [Suspect]
     Active Substance: SOMATROPIN
     Indication: Hypoglycaemia
  3. SOMATROPIN [Suspect]
     Active Substance: SOMATROPIN
     Indication: Prader-Willi syndrome
  4. SOMATROPIN [Suspect]
     Active Substance: SOMATROPIN
     Indication: Dehydration

REACTIONS (4)
  - Death [Fatal]
  - Sudden infant death syndrome [Fatal]
  - Off label use [Unknown]
  - Off label use [Unknown]

NARRATIVE: CASE EVENT DATE: 20230516
